FAERS Safety Report 10927589 (Version 1)
Quarter: 2015Q1

REPORT INFORMATION
  Report Type: Spontaneous
  Country: FR (occurrence: FR)
  Receive Date: 20150318
  Receipt Date: 20150318
  Transmission Date: 20150721
  Serious: Yes (Hospitalization)
  Sender: FDA-Public Use
  Company Number: FR-BRISTOL-MYERS SQUIBB COMPANY-BMS-2015-015222

PATIENT
  Age: 85 Year
  Sex: Female

DRUGS (2)
  1. HEPARIN CALCIUM [Suspect]
     Active Substance: HEPARIN CALCIUM
     Indication: ARRHYTHMIA
     Dosage: UNK
     Route: 042
     Dates: start: 20150204, end: 201502
  2. COUMADINE [Suspect]
     Active Substance: WARFARIN SODIUM
     Indication: ARRHYTHMIA
     Dosage: UNK
     Route: 048
     Dates: end: 20150204

REACTIONS (4)
  - International normalised ratio increased [Recovered/Resolved]
  - Pain [Recovered/Resolved]
  - Haematoma [Recovered/Resolved]
  - Red blood cell count decreased [Recovered/Resolved]

NARRATIVE: CASE EVENT DATE: 20150204
